FAERS Safety Report 13070274 (Version 1)
Quarter: 2016Q4

REPORT INFORMATION
  Report Type: Report from Study
  Country: US (occurrence: US)
  Receive Date: 20161228
  Receipt Date: 20161228
  Transmission Date: 20170207
  Serious: Yes (Hospitalization)
  Sender: FDA-Public Use
  Company Number: US-ASTRAZENECA-2016SF36884

PATIENT
  Age: 53 Year
  Sex: Female
  Weight: 94.8 kg

DRUGS (2)
  1. LYNPARZA [Suspect]
     Active Substance: OLAPARIB
     Indication: OFF LABEL USE
     Route: 048
     Dates: start: 20160901
  2. LYNPARZA [Suspect]
     Active Substance: OLAPARIB
     Indication: OFF LABEL USE
     Route: 048
     Dates: start: 20160929

REACTIONS (1)
  - Febrile neutropenia [Recovered/Resolved]

NARRATIVE: CASE EVENT DATE: 20160921
